FAERS Safety Report 4450671-9 (Version None)
Quarter: 2004Q3

REPORT INFORMATION
  Report Type: 
  Country: None (occurrence: None)
  Receive Date: 20040914
  Receipt Date: 20040914
  Transmission Date: 20050211
  Serious: Yes (Other)
  Sender: FDA-Public Use
  Company Number: None

PATIENT
  Age: 29 Year
  Sex: Male
  Weight: 87.0906 kg

DRUGS (2)
  1. LEVAQUIN [Suspect]
     Indication: SUBCUTANEOUS ABSCESS
     Dosage: 750MG PO DAILY X 5 DAYS
     Route: 048
     Dates: start: 20040902
  2. LEVAQUIN [Suspect]
     Indication: SUBCUTANEOUS ABSCESS
     Dosage: 750MG PO DAILY X 5 DAYS
     Route: 048
     Dates: start: 20040903

REACTIONS (4)
  - CONTUSION [None]
  - FALL [None]
  - HEAD INJURY [None]
  - LOSS OF CONSCIOUSNESS [None]
